FAERS Safety Report 24173840 (Version 1)
Quarter: 2024Q3

REPORT INFORMATION
  Report Type: Spontaneous
  Country: ES (occurrence: ES)
  Receive Date: 20240805
  Receipt Date: 20240805
  Transmission Date: 20241017
  Serious: Yes (Hospitalization, Other)
  Sender: CHEPLAPHARM
  Company Number: None

PATIENT
  Age: 75 Year
  Sex: Male

DRUGS (23)
  1. OLANZAPINE [Interacting]
     Active Substance: OLANZAPINE
     Indication: Depression
     Dosage: 2,5 MG DESDE EL 25/07/2023
     Route: 048
     Dates: start: 20230725, end: 20240126
  2. OLANZAPINE [Interacting]
     Active Substance: OLANZAPINE
     Indication: Depression
     Dosage: DAILY DOSE: 15 MILLIGRAM
     Route: 048
     Dates: start: 20240127, end: 20240304
  3. OLANZAPINE [Interacting]
     Active Substance: OLANZAPINE
     Indication: Depression
     Dosage: 0-0-1
     Route: 048
     Dates: start: 20240305, end: 20240422
  4. ANAFRANIL [Interacting]
     Active Substance: CLOMIPRAMINE HYDROCHLORIDE
     Dosage: 1-0-1?DAILY DOSE: 150 MILLIGRAM
     Route: 048
     Dates: start: 20230720, end: 20240422
  5. TRAZODONE HYDROCHLORIDE [Interacting]
     Active Substance: TRAZODONE HYDROCHLORIDE
     Dosage: 0-0-2?DAILY DOSE: 200 MILLIGRAM
     Route: 048
     Dates: start: 20231106, end: 20240422
  6. ALMOTRIPTAN MALATE [Concomitant]
     Active Substance: ALMOTRIPTAN MALATE
     Dosage: 2 EVERY 24 HOURS; 6 TABLETS
     Route: 048
     Dates: start: 20120628
  7. NAPROXEN SODIUM [Concomitant]
     Active Substance: NAPROXEN\NAPROXEN SODIUM
     Dosage: 1-0-1; 40 TABLETS?DAILY DOSE: 1100 MILLIGRAM
     Route: 048
     Dates: start: 20180709
  8. MASTIC [Concomitant]
     Dosage: 1-0-1; 60 TABLETS?DAILY DOSE: 100 MILLIGRAM
     Route: 048
     Dates: start: 20211030
  9. ACETAMINOPHEN [Concomitant]
     Active Substance: ACETAMINOPHEN
     Dosage: 1-1-1; 40 TABLETS?DAILY DOSE: 4000 MILLIGRAM
     Route: 048
     Dates: start: 20120601
  10. CALCIFEDIOL [Concomitant]
     Active Substance: CALCIFEDIOL
     Dosage: 1 EVERY 15 DAYS; 10 CAPSULES
     Route: 048
     Dates: start: 20200320
  11. NASONEX [Concomitant]
     Active Substance: MOMETASONE FUROATE
     Dosage: SUSPENSION FOR NASAL SPRAY; DOSE: 140
  12. Esmoprazole [Concomitant]
     Dosage: 1-0-0; 28 CAPSULES?DAILY DOSE: 20 MILLIGRAM
     Route: 048
     Dates: start: 20141216
  13. ABSORCOL [Concomitant]
     Dosage: 1-0-0-; 28 TABLETS?DAILY DOSE: 10 MILLIGRAM
     Route: 048
     Dates: start: 20140327
  14. PITAVASTATIN [Concomitant]
     Active Substance: PITAVASTATIN
     Dosage: 1-0-0; 28 TABLETS?DAILY DOSE: 2 MILLIGRAM
     Route: 048
     Dates: start: 20140327
  15. TOVIAZ [Concomitant]
     Active Substance: FESOTERODINE FUMARATE
     Dosage: 1-0-0; 28 ORAL TABLETS?DAILY DOSE: 4 MILLIGRAM
     Route: 048
     Dates: start: 20120504
  16. MOVICOL [Concomitant]
     Active Substance: POLYETHYLENE GLYCOL 3350\POTASSIUM CHLORIDE\SODIUM BICARBONATE\SODIUM CHLORIDE
     Dosage: 20 SACHETS, 1 U.D (1-1-1-)
     Route: 048
     Dates: start: 20211027
  17. CICLOPIROX OLAMINE [Concomitant]
     Active Substance: CICLOPIROX OLAMINE
     Dosage: 1-0-0
     Route: 061
     Dates: start: 20120504
  18. SULPIRIDE [Concomitant]
     Active Substance: SULPIRIDE
     Dosage: 1-1-1; 30 HARD CAPSULES?DAILY DOSE: 150 MILLIGRAM
     Route: 048
     Dates: start: 20120601
  19. ALPRAZOLAM [Concomitant]
     Active Substance: ALPRAZOLAM
     Dosage: 30 TABLETS; 1-1-2
     Dates: start: 20141216
  20. ALPRAZOLAM [Concomitant]
     Active Substance: ALPRAZOLAM
     Dosage: 1-0-1; 30 TABLETS?DAILY DOSE: 4 MILLIGRAM
     Route: 048
     Dates: start: 20230612
  21. TOPIRAMATE [Concomitant]
     Active Substance: TOPIRAMATE
     Dosage: 2-0-2; 60 TABLETS
     Route: 048
     Dates: start: 20160727
  22. Deprax [Concomitant]
     Dosage: 0-0-2; 60 TABLETS
     Route: 048
     Dates: start: 20231106
  23. ANAFRANIL [Concomitant]
     Active Substance: CLOMIPRAMINE HYDROCHLORIDE
     Dosage: 1-0-1; 28 TABLETS?DAILY DOSE: 150 MILLIGRAM
     Route: 048
     Dates: start: 20230720

REACTIONS (2)
  - Hyponatraemia [Recovered/Resolved]
  - Inappropriate antidiuretic hormone secretion [Unknown]

NARRATIVE: CASE EVENT DATE: 20240420
